FAERS Safety Report 5130972-1 (Version None)
Quarter: 2006Q4

REPORT INFORMATION
  Report Type: 
  Country: None (occurrence: None)
  Receive Date: 20060829
  Receipt Date: 20060717
  Transmission Date: 20070319
  Serious: No
  Sender: FDA-Public Use
  Company Number: PHEH2006US09131

PATIENT
  Sex: Male
  Weight: 65.8 kg

DRUGS (1)
  1. EXJADE [Suspect]
     Dosage: 2500 MG, QD, ORAL
     Route: 048

REACTIONS (3)
  - CONSTIPATION [None]
  - STOMACH DISCOMFORT [None]
  - WEIGHT DECREASED [None]
